FAERS Safety Report 10094266 (Version 1)
Quarter: 2014Q2

REPORT INFORMATION
  Report Type: Spontaneous
  Country: BR (occurrence: BR)
  Receive Date: 20140422
  Receipt Date: 20140422
  Transmission Date: 20141212
  Serious: Yes (Hospitalization)
  Sender: FDA-Public Use
  Company Number: BR-ASTRAZENECA-2014SE26796

PATIENT
  Age: 68 Year
  Sex: Female
  Weight: 74 kg

DRUGS (7)
  1. NEXIUM [Suspect]
     Indication: GASTROOESOPHAGEAL REFLUX DISEASE
     Route: 048
     Dates: start: 201401
  2. NOLVADEX D [Suspect]
     Indication: BREAST CANCER FEMALE
     Route: 048
     Dates: start: 2005, end: 2010
  3. NOLVADEX D [Suspect]
     Indication: BREAST CALCIFICATIONS
     Route: 048
     Dates: start: 2005, end: 2010
  4. NOLVADEX D [Suspect]
     Indication: BREAST CANCER FEMALE
     Route: 048
     Dates: start: 201404
  5. NOLVADEX D [Suspect]
     Indication: BREAST CALCIFICATIONS
     Route: 048
     Dates: start: 201404
  6. GLIFAGE [Suspect]
     Indication: HYPERGLYCAEMIA
     Route: 048
     Dates: start: 2005
  7. NEBILET [Concomitant]
     Indication: HYPERTENSION
     Dosage: DAILY
     Route: 048
     Dates: start: 201401

REACTIONS (5)
  - Breast calcifications [Recovered/Resolved]
  - Blood glucose increased [Recovered/Resolved]
  - Gastrooesophageal reflux disease [Recovering/Resolving]
  - Blood pressure increased [Recovering/Resolving]
  - Off label use [Not Recovered/Not Resolved]
